FAERS Safety Report 24827732 (Version 1)
Quarter: 2025Q1

REPORT INFORMATION
  Report Type: Report from Study
  Country: IT (occurrence: IT)
  Receive Date: 20250109
  Receipt Date: 20250109
  Transmission Date: 20250408
  Serious: Yes (Congenital Anomaly, Other)
  Sender: MYLAN
  Company Number: IT-UCBSA-2024068191

PATIENT

DRUGS (1)
  1. LEVETIRACETAM [Suspect]
     Active Substance: LEVETIRACETAM
     Indication: Epilepsy
     Dosage: 1000 MILLIGRAM, QD (1000 MILLIGRAM, DAILY)
     Route: 064

REACTIONS (3)
  - Developmental hip dysplasia [Unknown]
  - Pelvic kidney [Unknown]
  - Foetal exposure during pregnancy [Unknown]

NARRATIVE: CASE EVENT DATE: 20230101
